FAERS Safety Report 4489255-5 (Version None)
Quarter: 2004Q4

REPORT INFORMATION
  Report Type: 
  Country: None (occurrence: None)
  Receive Date: 20041026
  Receipt Date: 20041012
  Transmission Date: 20050328
  Serious: Yes (Other)
  Sender: FDA-Public Use
  Company Number: 2004-UK-00547UK

PATIENT
  Age: 41 Year
  Sex: Female

DRUGS (4)
  1. NEVIRAPINE            (NEVIRAPINE) [Suspect]
     Indication: HIV INFECTION
     Dosage: 400 MG
     Route: 048
  2. NELFINAVIR             (NELFINAVIR) [Concomitant]
  3. DIDANOSINE [Concomitant]
  4. FOLATE SUPPLEMENT [Concomitant]

REACTIONS (8)
  - ABORTION INDUCED [None]
  - CONGENITAL ATRIAL SEPTAL DEFECT [None]
  - CONGENITAL TRICUSPID VALVE ATRESIA [None]
  - CONGENITAL VENTRICULAR SEPTAL DEFECT [None]
  - DRUG EXPOSURE DURING PREGNANCY [None]
  - INTRA-UTERINE DEATH [None]
  - VENTRICULAR HYPERTROPHY [None]
  - VENTRICULAR HYPOPLASIA [None]
